FAERS Safety Report 21299282 (Version 8)
Quarter: 2022Q4

REPORT INFORMATION
  Report Type: Report from Study
  Country: US (occurrence: US)
  Receive Date: 20220906
  Receipt Date: 20221012
  Transmission Date: 20230113
  Serious: No
  Sender: FDA-Public Use
  Company Number: US-NOVARTISTESTPH-NVSC2022US196153

PATIENT
  Age: 40 Year
  Sex: Male

DRUGS (1)
  1. KESIMPTA [Suspect]
     Active Substance: OFATUMUMAB
     Indication: Multiple sclerosis
     Dosage: 20 MG
     Route: 065
     Dates: start: 20220822

REACTIONS (5)
  - JC polyomavirus test positive [Unknown]
  - Sluggishness [Unknown]
  - Myalgia [Unknown]
  - Fatigue [Unknown]
  - Chills [Unknown]

NARRATIVE: CASE EVENT DATE: 20220822
